FAERS Safety Report 6959410-0 (Version None)
Quarter: 2010Q3

REPORT INFORMATION
  Report Type: 
  Country: None (occurrence: None)
  Receive Date: 20100831
  Receipt Date: 20100831
  Transmission Date: 20110219
  Serious: Yes (Other)
  Sender: FDA-Public Use
  Company Number: None

PATIENT
  Sex: Female
  Weight: 50.9 kg

DRUGS (2)
  1. LEVAQUIN [Suspect]
     Indication: BRONCHITIS
     Dosage: 500MG 1 QD PO
     Route: 048
     Dates: start: 20100823, end: 20100826
  2. LEVAQUIN [Suspect]
     Indication: PNEUMONIA
     Dosage: 500MG 1 QD PO
     Route: 048
     Dates: start: 20100823, end: 20100826

REACTIONS (2)
  - GAIT DISTURBANCE [None]
  - TENDONITIS [None]
